FAERS Safety Report 8972258 (Version 1)
Quarter: 2012Q4

REPORT INFORMATION
  Report Type: Spontaneous
  Country: US (occurrence: None)
  Receive Date: 20121217
  Receipt Date: 20121217
  Transmission Date: 20130627
  Serious: Yes (Hospitalization)
  Sender: FDA-Public Use
  Company Number: None

PATIENT
  Sex: Male

DRUGS (1)
  1. MYFORTIC [Suspect]
     Route: 048
     Dates: start: 20120128, end: 201212

REACTIONS (2)
  - Diarrhoea [None]
  - Dehydration [None]
